FAERS Safety Report 7559655-5 (Version None)
Quarter: 2011Q2

REPORT INFORMATION
  Report Type: 
  Country: None (occurrence: None)
  Receive Date: 20110621
  Receipt Date: 20110607
  Transmission Date: 20111010
  Serious: Yes (Other)
  Sender: FDA-Public Use
  Company Number: US-ROCHE-734399

PATIENT
  Sex: Female
  Weight: 77.1 kg

DRUGS (3)
  1. ACCUTANE [Suspect]
     Route: 065
     Dates: start: 19940101, end: 19960101
  2. ACCUTANE [Suspect]
     Indication: ACNE
     Route: 065
     Dates: start: 19930101
  3. ACCUTANE [Suspect]
     Route: 065
     Dates: end: 19970101

REACTIONS (4)
  - COLONIC POLYP [None]
  - CROHN'S DISEASE [None]
  - HAEMORRHOIDS [None]
  - GASTROINTESTINAL INJURY [None]
